APPROVED DRUG PRODUCT: PROBAMPACIN
Active Ingredient: AMPICILLIN/AMPICILLIN TRIHYDRATE; PROBENECID
Strength: EQ 3.5GM BASE/BOT;1GM/BOT
Dosage Form/Route: FOR SUSPENSION;ORAL
Application: A061741 | Product #001
Applicant: COSETTE PHARMACEUTICALS INC
Approved: Approved Prior to Jan 1, 1982 | RLD: No | RS: No | Type: DISCN